FAERS Safety Report 9046302 (Version 1)
Quarter: 2013Q1

REPORT INFORMATION
  Report Type: Spontaneous
  Country: US (occurrence: None)
  Receive Date: 20130128
  Receipt Date: 20130128
  Transmission Date: 20140127
  Serious: Yes (Death, Life-Threatening, Other)
  Sender: FDA-Public Use
  Company Number: None

PATIENT
  Age: 63 Year
  Sex: Male
  Weight: 81.2 kg

DRUGS (2)
  1. BEVACIZUMAB [Suspect]
     Indication: LUNG ADENOCARCINOMA STAGE IV
     Route: 042
     Dates: start: 20121218, end: 20121218
  2. HEPARIN [Suspect]
     Indication: THROMBOSIS PROPHYLAXIS
     Dosage: 5000 UNITS  TID  SQ?01/01/2013  THRU  01/04/2013
     Route: 058
     Dates: start: 20130101, end: 20130104

REACTIONS (3)
  - Pulmonary haemorrhage [None]
  - Haemorrhage [None]
  - Cardio-respiratory arrest [None]
